FAERS Safety Report 12967756 (Version 2)
Quarter: 2017Q1

REPORT INFORMATION
  Report Type: Spontaneous
  Country: US (occurrence: US)
  Receive Date: 20161123
  Receipt Date: 20170118
  Transmission Date: 20170428
  Serious: No
  Sender: FDA-Public Use
  Company Number: US-PFIZER INC-2016534499

PATIENT
  Age: 72 Year
  Sex: Female

DRUGS (1)
  1. XELJANZ XR [Suspect]
     Active Substance: TOFACITINIB CITRATE
     Indication: RHEUMATOID ARTHRITIS
     Dosage: 11 MG, UNK

REACTIONS (9)
  - Fatigue [Unknown]
  - Influenza like illness [Unknown]
  - Muscle spasms [Unknown]
  - Arthralgia [Unknown]
  - Drug effect decreased [Unknown]
  - Headache [Unknown]
  - Neuralgia [Unknown]
  - Abdominal pain lower [Unknown]
  - Feeling of body temperature change [Unknown]

NARRATIVE: CASE EVENT DATE: 20161115
